FAERS Safety Report 11667550 (Version 1)
Quarter: 2015Q4

REPORT INFORMATION
  Report Type: Spontaneous
  Country: US (occurrence: US)
  Receive Date: 20151027
  Receipt Date: 20151027
  Transmission Date: 20160304
  Serious: No
  Sender: FDA-Public Use
  Company Number: US-ELI_LILLY_AND_COMPANY-US201003000277

PATIENT
  Age: 67 Year
  Sex: Female

DRUGS (2)
  1. CALCIUM [Concomitant]
     Active Substance: CALCIUM
     Dosage: UNK, UNKNOWN
  2. FORTEO [Suspect]
     Active Substance: TERIPARATIDE
     Indication: OSTEOPOROSIS
     Dosage: UNK, UNKNOWN
     Dates: start: 200608, end: 2007

REACTIONS (9)
  - Arthralgia [Unknown]
  - Neuropathy peripheral [Recovering/Resolving]
  - Myopathy [Recovering/Resolving]
  - Pain [Unknown]
  - Joint injury [Unknown]
  - Myalgia [Unknown]
  - Bone density decreased [Unknown]
  - Migraine [Recovering/Resolving]
  - Body height decreased [Unknown]

NARRATIVE: CASE EVENT DATE: 20060802
